FAERS Safety Report 10950206 (Version 6)
Quarter: 2016Q1

REPORT INFORMATION
  Report Type: Spontaneous
  Country: US (occurrence: US)
  Receive Date: 20150324
  Receipt Date: 20160311
  Transmission Date: 20160525
  Serious: Yes (Congenital Anomaly, Other)
  Sender: FDA-Public Use
  Company Number: US-ELI_LILLY_AND_COMPANY-US201503005482

PATIENT
  Age: 0 Day
  Sex: Female

DRUGS (3)
  1. POTASSIUM [Concomitant]
     Active Substance: POTASSIUM
     Indication: HYPOKALAEMIA
     Dosage: UNK
     Route: 064
     Dates: start: 20091229, end: 20091230
  2. PRENATAL                           /00231801/ [Concomitant]
     Active Substance: VITAMINS
     Dosage: 1 DF, QD
     Route: 064
  3. PROZAC [Suspect]
     Active Substance: FLUOXETINE HYDROCHLORIDE
     Indication: PRODUCT USED FOR UNKNOWN INDICATION
     Dosage: UNK, UNKNOWN
     Route: 064

REACTIONS (11)
  - Pneumothorax [Recovered/Resolved]
  - Dermatitis diaper [Unknown]
  - Congenital pneumonia [Recovered/Resolved]
  - Upper respiratory tract infection [Unknown]
  - Pulmonary hypertension [Unknown]
  - Bronchospasm [Unknown]
  - Foetal exposure during pregnancy [Recovered/Resolved]
  - Sinusitis [Unknown]
  - Bronchiolitis [Unknown]
  - Neonatal respiratory distress syndrome [Recovered/Resolved]
  - Tachypnoea [Recovered/Resolved]

NARRATIVE: CASE EVENT DATE: 20091230
